FAERS Safety Report 6903380-8 (Version None)
Quarter: 2010Q3

REPORT INFORMATION
  Report Type: 
  Country: None (occurrence: None)
  Receive Date: 20100803
  Receipt Date: 20081013
  Transmission Date: 20110219
  Serious: No
  Sender: FDA-Public Use
  Company Number: US-PFIZER INC-2008074108

PATIENT
  Sex: Female
  Weight: 85 kg

DRUGS (12)
  1. LYRICA [Suspect]
     Indication: FIBROMYALGIA
     Route: 048
     Dates: start: 20070701
  2. ALL OTHER THERAPEUTIC PRODUCTS [Concomitant]
  3. ULTRAM [Concomitant]
  4. VICODIN [Concomitant]
  5. FLEXERIL [Concomitant]
  6. PROVIGIL [Concomitant]
  7. HYDROCHLOROTHIAZIDE [Concomitant]
  8. MIRAPEX [Concomitant]
  9. ZANAFLEX [Concomitant]
  10. OMEPRAZOLE [Concomitant]
  11. CYMBALTA [Concomitant]
  12. XANAX [Concomitant]

REACTIONS (5)
  - INGROWN HAIR [None]
  - LOCALISED INFECTION [None]
  - PAIN OF SKIN [None]
  - SKIN HYPERTROPHY [None]
  - VITAMIN D DECREASED [None]
